FAERS Safety Report 18800774 (Version 1)
Quarter: 2021Q1

REPORT INFORMATION
  Report Type: Spontaneous
  Country: FI (occurrence: FI)
  Receive Date: 20210128
  Receipt Date: 20210128
  Transmission Date: 20210419
  Serious: Yes (Life-Threatening)
  Sender: FDA-Public Use
  Company Number: FI-DSJP-DSE-2021-102054

PATIENT
  Age: 53 Year
  Sex: Male

DRUGS (1)
  1. SEVIKAR [Suspect]
     Active Substance: AMLODIPINE BESYLATE\OLMESARTAN MEDOXOMIL
     Indication: HYPERTENSION
     Dosage: UNK
     Dates: start: 2013, end: 20201204

REACTIONS (13)
  - Hypokalaemia [Recovered/Resolved]
  - Anaemia [Recovered/Resolved]
  - Asthenia [Recovered/Resolved]
  - Hypomagnesaemia [Recovered/Resolved]
  - Malabsorption [Recovered/Resolved]
  - Weight decreased [Recovered/Resolved]
  - Hypocalcaemia [Recovered/Resolved]
  - Intestinal villi atrophy [Recovered/Resolved]
  - Diarrhoea [Recovered/Resolved]
  - Tetany [Recovered/Resolved]
  - Vitamin K deficiency [Recovered/Resolved]
  - Hypoalbuminaemia [Recovered/Resolved]
  - Gastrointestinal disorder [Recovered/Resolved]

NARRATIVE: CASE EVENT DATE: 20201207
